FAERS Safety Report 23743119 (Version 1)
Quarter: 2024Q2

REPORT INFORMATION
  Report Type: Spontaneous
  Country: US (occurrence: None)
  Receive Date: 20240415
  Receipt Date: 20240415
  Transmission Date: 20240717
  Serious: Yes (Death)
  Sender: FDA-Public Use
  Company Number: None

PATIENT
  Sex: Female

DRUGS (2)
  1. OPSUMIT [Suspect]
     Active Substance: MACITENTAN
     Indication: Pulmonary arterial hypertension
     Dosage: 10MG ONCE DILY ORL
     Route: 048
     Dates: start: 202401
  2. TADALAFIL [Concomitant]

REACTIONS (3)
  - Cardiac failure congestive [None]
  - Renal failure [None]
  - Cardiac failure [None]
